FAERS Safety Report 6488645-9 (Version None)
Quarter: 2009Q4

REPORT INFORMATION
  Report Type: 
  Country: None (occurrence: None)
  Receive Date: 20091210
  Receipt Date: 20091209
  Transmission Date: 20100525
  Serious: Yes (Other)
  Sender: FDA-Public Use
  Company Number: DE-EISAI INC.-E2090-00923-SPO-DE

PATIENT
  Age: 69 Year
  Sex: Male

DRUGS (2)
  1. ZONEGRAN [Suspect]
     Indication: DRUG USE FOR UNKNOWN INDICATION
     Route: 048
     Dates: start: 20090401, end: 20090901
  2. ZONEGRAN [Suspect]
     Route: 048
     Dates: start: 20090901

REACTIONS (1)
  - BLOOD CREATININE INCREASED [None]
